FAERS Safety Report 15386853 (Version 2)
Quarter: 2018Q3

REPORT INFORMATION
  Report Type: Spontaneous
  Country: US (occurrence: US)
  Receive Date: 20180914
  Receipt Date: 20180919
  Transmission Date: 20181010
  Serious: No
  Sender: FDA-Public Use
  Company Number: US-PFIZER INC-2018370772

PATIENT
  Age: 77 Year
  Sex: Female
  Weight: 72.57 kg

DRUGS (1)
  1. LYRICA [Suspect]
     Active Substance: PREGABALIN
     Indication: AMPUTATION
     Dosage: 75 MG, TWICE A DAY
     Route: 048
     Dates: start: 2017, end: 20180901

REACTIONS (3)
  - Paraesthesia [Unknown]
  - Asthenia [Recovered/Resolved]
  - Product use in unapproved indication [Unknown]
